FAERS Safety Report 13793068 (Version 1)
Quarter: 2017Q3

REPORT INFORMATION
  Report Type: Spontaneous
  Country: US (occurrence: US)
  Receive Date: 20170726
  Receipt Date: 20170726
  Transmission Date: 20171127
  Serious: No
  Sender: FDA-Public Use
  Company Number: None

PATIENT
  Sex: Female
  Weight: 47.25 kg

DRUGS (1)
  1. ESBRIET [Suspect]
     Active Substance: PIRFENIDONE
     Indication: IDIOPATHIC PULMONARY FIBROSIS
     Dosage: ?          QUANTITY:3 CAPSULE(S);?
     Route: 048
     Dates: start: 20170315, end: 20170624

REACTIONS (6)
  - Rash generalised [None]
  - Nausea [None]
  - Constipation [None]
  - Decreased appetite [None]
  - Ageusia [None]
  - Fatigue [None]

NARRATIVE: CASE EVENT DATE: 20170624
